FAERS Safety Report 15490858 (Version 2)
Quarter: 2018Q4

REPORT INFORMATION
  Report Type: Spontaneous
  Country: FR (occurrence: FR)
  Receive Date: 20181011
  Receipt Date: 20181017
  Transmission Date: 20190205
  Serious: Yes (Hospitalization, Other)
  Sender: FDA-Public Use
  Company Number: FR-BRISTOL-MYERS SQUIBB COMPANY-16892440

PATIENT
  Age: 83 Year
  Sex: Female
  Weight: 68 kg

DRUGS (4)
  1. KARDEGIC [Interacting]
     Active Substance: ASPIRIN DL-LYSINE
     Indication: PRODUCT USED FOR UNKNOWN INDICATION
     Dosage: 75 MG, QD
     Route: 048
     Dates: start: 201203, end: 20120531
  2. COUMADIN [Suspect]
     Active Substance: WARFARIN SODIUM
     Indication: PRODUCT USED FOR UNKNOWN INDICATION
     Dosage: 5 MG, QWK
     Route: 048
     Dates: start: 20120516
  3. CALCIPARINE [Concomitant]
     Active Substance: HEPARIN CALCIUM
     Indication: PRODUCT USED FOR UNKNOWN INDICATION
     Dosage: 0.35 ML, QD
     Route: 058
     Dates: start: 20120514, end: 20120516
  4. PLAVIX [Interacting]
     Active Substance: CLOPIDOGREL BISULFATE
     Indication: STENT PLACEMENT
     Dosage: 75 MG, QD
     Route: 048
     Dates: start: 201203

REACTIONS (2)
  - Urinary bladder haemorrhage [Unknown]
  - Drug interaction [Unknown]

NARRATIVE: CASE EVENT DATE: 20120531
